FAERS Safety Report 21519231 (Version 2)
Quarter: 2022Q4

REPORT INFORMATION
  Report Type: Spontaneous
  Country: US (occurrence: None)
  Receive Date: 20221028
  Receipt Date: 20221212
  Transmission Date: 20230112
  Serious: Yes (Death, Other)
  Sender: FDA-Public Use
  Company Number: US-ROCHE-3209110

PATIENT
  Sex: Male
  Weight: 99.880 kg

DRUGS (1)
  1. CELLCEPT [Suspect]
     Active Substance: MYCOPHENOLATE MOFETIL
     Indication: Heart transplant
     Dosage: ONGOING: NO
     Route: 065

REACTIONS (2)
  - Death [Fatal]
  - Diabetes mellitus [Unknown]
